FAERS Safety Report 8588743-X (Version None)
Quarter: 2012Q3

REPORT INFORMATION
  Report Type: 
  Country: None (occurrence: None)
  Receive Date: 20120813
  Receipt Date: 20120809
  Transmission Date: 20120928
  Serious: Yes (Death)
  Sender: FDA-Public Use
  Company Number: CH-JNJFOC-20120803995

PATIENT
  Age: 45 Year
  Sex: Male
  Weight: 95 kg

DRUGS (9)
  1. NEBIVOLOL HCL [Concomitant]
     Route: 065
  2. SIMVASTATIN [Concomitant]
     Route: 065
  3. ASPIRIN [Concomitant]
     Route: 065
  4. GLICLAZIDE [Concomitant]
     Route: 065
  5. INVEGA [Suspect]
     Indication: SCHIZOPHRENIA
     Dates: end: 20120727
  6. ZYPREXA [Suspect]
     Indication: PRODUCT USED FOR UNKNOWN INDICATION
     Route: 065
  7. FLUVOXAMINE MALEATE [Suspect]
     Indication: PRODUCT USED FOR UNKNOWN INDICATION
     Route: 065
  8. ZYPREXA [Suspect]
     Route: 065
  9. EZETIMIBE [Concomitant]
     Route: 065

REACTIONS (1)
  - SUDDEN CARDIAC DEATH [None]
